FAERS Safety Report 5825743-4 (Version None)
Quarter: 2008Q3

REPORT INFORMATION
  Report Type: 
  Country: None (occurrence: None)
  Receive Date: 20080728
  Receipt Date: 20080728
  Transmission Date: 20090109
  Serious: Yes (Other)
  Sender: FDA-Public Use
  Company Number: None

PATIENT
  Age: 57 Year
  Sex: Female
  Weight: 104.3273 kg

DRUGS (1)
  1. ULTRAM ER [Suspect]
     Indication: OSTEOARTHRITIS
     Dosage: 100MG TWICE A DAY PO
     Route: 048
     Dates: start: 20080722, end: 20080723

REACTIONS (10)
  - COLD SWEAT [None]
  - DIZZINESS [None]
  - HEART RATE INCREASED [None]
  - HYPERHIDROSIS [None]
  - MALAISE [None]
  - MIOSIS [None]
  - NAUSEA [None]
  - PRURITUS GENERALISED [None]
  - VERTIGO [None]
  - VOMITING [None]
